FAERS Safety Report 9576457 (Version 1)
Quarter: 2013Q4

REPORT INFORMATION
  Report Type: Spontaneous
  Country: US (occurrence: US)
  Receive Date: 20131001
  Receipt Date: 20131001
  Transmission Date: 20140711
  Serious: No
  Sender: FDA-Public Use
  Company Number: US-AMGEN-USASP2013003048

PATIENT
  Sex: Male
  Weight: 83.9 kg

DRUGS (4)
  1. ENBREL [Suspect]
     Indication: PSORIASIS
     Dosage: 50 MG, 2 TIMES/WK
     Route: 058
  2. ONGLYZA [Concomitant]
     Dosage: 5 MG, UNK
  3. LIPITOR [Concomitant]
     Dosage: 20 MG, UNK
  4. METFORMIN [Concomitant]
     Dosage: 500 MG, UNK

REACTIONS (1)
  - Staphylococcal infection [Unknown]
